FAERS Safety Report 11546182 (Version 2)
Quarter: 2015Q4

REPORT INFORMATION
  Report Type: Spontaneous
  Country: CN (occurrence: CN)
  Receive Date: 20150924
  Receipt Date: 20151005
  Transmission Date: 20160304
  Serious: Yes (Other)
  Sender: FDA-Public Use
  Company Number: CN-JNJFOC-20150912593

PATIENT
  Age: 41 Year
  Sex: Female

DRUGS (3)
  1. TOPAMAX [Suspect]
     Active Substance: TOPIRAMATE
     Indication: EPILEPSY
     Dosage: TWO CAPUSLES IN THE MORNING AND THREE CAPSULES IN THE??EVENING.
     Route: 048
     Dates: start: 201508
  2. TOPAMAX [Suspect]
     Active Substance: TOPIRAMATE
     Indication: EPILEPSY
     Route: 048
     Dates: start: 201508
  3. TOPAMAX [Suspect]
     Active Substance: TOPIRAMATE
     Indication: EPILEPSY
     Route: 048
     Dates: start: 201503, end: 201507

REACTIONS (3)
  - Epilepsy [Not Recovered/Not Resolved]
  - Treatment noncompliance [Unknown]
  - Angioedema [Recovering/Resolving]
